FAERS Safety Report 4743778-X (Version None)
Quarter: 2005Q3

REPORT INFORMATION
  Report Type: 
  Country: None (occurrence: None)
  Receive Date: 20050812
  Receipt Date: 20050802
  Transmission Date: 20060218
  Serious: Yes (Other)
  Sender: FDA-Public Use
  Company Number: PHEH2005US08602

PATIENT
  Age: 67 Year
  Sex: Male
  Weight: 87 kg

DRUGS (3)
  1. LOTREL [Suspect]
     Indication: HYPERTENSION
     Dosage: 10/20MG, QD
     Route: 048
  2. LOTREL [Suspect]
     Dosage: 5/10MG, QD
     Route: 048
     Dates: start: 20050301
  3. TRICOR [Concomitant]

REACTIONS (3)
  - BLADDER OPERATION [None]
  - DISEASE PROGRESSION [None]
  - POLLAKIURIA [None]
